FAERS Safety Report 9220521 (Version 2)
Quarter: 2013Q2

REPORT INFORMATION
  Report Type: Report from Study
  Country: US (occurrence: US)
  Receive Date: 20130409
  Receipt Date: 20130612
  Transmission Date: 20140414
  Serious: Yes (Hospitalization)
  Sender: FDA-Public Use
  Company Number: PHHO2013US004856

PATIENT
  Age: 67 Year
  Sex: Male
  Weight: 73 kg

DRUGS (7)
  1. TASIGNA [Suspect]
     Indication: GRAFT VERSUS HOST DISEASE
     Dosage: 200 MG, UNK
     Route: 048
     Dates: start: 20130213, end: 20130403
  2. MEDROL [Concomitant]
     Dosage: 3.5 TAB (S) ONCE A DAY
     Route: 048
  3. CLINDAMYCIN [Concomitant]
     Dosage: 1 DOSE 2 TIMES A DAY TO THE CHEST AREA
     Route: 061
  4. DURAGESIC [Concomitant]
     Dosage: 1 PATCH EVERY 72 HOURS
     Route: 062
  5. BACTRIM DS [Concomitant]
     Dosage: 160-800 MG, 1 TAB (S) 2 TIMES A DAY ONLY SATURDAY AND SUNDAYS
     Route: 048
  6. ONDANSETRON [Concomitant]
     Indication: VOMITING
     Dosage: 8 MG, Q6H AS NEEDED
     Route: 048
  7. PROCHLORPERAZINE [Concomitant]
     Indication: VOMITING
     Dosage: 10 MG, Q6H AS NEEDED
     Route: 048

REACTIONS (1)
  - Myocardial infarction [Recovered/Resolved]
